FAERS Safety Report 9186781 (Version 1)
Quarter: 2012Q4

REPORT INFORMATION
  Report Type: 
  Country: GB (occurrence: GB)
  Receive Date: 20121102
  Receipt Date: 20121102
  Transmission Date: 20130627
  Serious: Yes (Other)
  Sender: FDA-Public Use
  Company Number: GB-ELI_LILLY_AND_COMPANY-GB201210007998

PATIENT
  Age: 50 Year
  Sex: Male

DRUGS (1)
  1. BYDUREON [Suspect]
     Dosage: 2 mg, UNK

REACTIONS (2)
  - Pulmonary embolism [Unknown]
  - Skin ulcer [Unknown]
